FAERS Safety Report 23587278 (Version 1)
Quarter: 2024Q1

REPORT INFORMATION
  Report Type: Spontaneous
  Country: CA (occurrence: CA)
  Receive Date: 20240301
  Receipt Date: 20240301
  Transmission Date: 20240410
  Serious: Yes (Disabling, Other)
  Sender: FDA-Public Use
  Company Number: CA-BEH-2023158663

PATIENT
  Age: 15 Year
  Sex: Female
  Weight: 57.8 kg

DRUGS (8)
  1. PRIVIGEN [Suspect]
     Active Substance: HUMAN IMMUNOGLOBULIN G
     Indication: Multifocal motor neuropathy
     Dosage: 10 GRAM, TOT
     Route: 042
     Dates: start: 20221222, end: 20221222
  2. PRIVIGEN [Suspect]
     Active Substance: HUMAN IMMUNOGLOBULIN G
     Dosage: 20 GRAM, TOT
     Route: 042
     Dates: start: 20221222, end: 20221222
  3. PRIVIGEN [Suspect]
     Active Substance: HUMAN IMMUNOGLOBULIN G
     Dosage: 20 GRAM, TOT
     Route: 042
     Dates: start: 20221222, end: 20221222
  4. RITUXAN [Concomitant]
     Active Substance: RITUXIMAB
     Dosage: 500 MILLIGRAM, SINGLE
     Route: 042
     Dates: start: 20220801, end: 20220801
  5. ADVIL [Concomitant]
     Active Substance: IBUPROFEN
     Indication: Premedication
     Dosage: 400 MILLIGRAM
     Route: 048
     Dates: start: 20221222
  6. ADVIL [Concomitant]
     Active Substance: IBUPROFEN
     Dosage: 400 MILLIGRAM
     Route: 048
     Dates: start: 20221222
  7. BENADRYL [Concomitant]
     Active Substance: DIPHENHYDRAMINE HYDROCHLORIDE
     Indication: Premedication
     Dosage: 50 MILLIGRAM
     Route: 048
     Dates: start: 20221222
  8. HYDROCORTISONE [Concomitant]
     Active Substance: HYDROCORTISONE
     Indication: Premedication
     Dosage: 50 MILLIGRAM
     Route: 042
     Dates: start: 20221222

REACTIONS (23)
  - Body temperature increased [Recovered/Resolved]
  - Blood pressure increased [Recovered/Resolved]
  - Chest pain [Recovered/Resolved]
  - Back pain [Recovered/Resolved]
  - Transient ischaemic attack [Recovered/Resolved]
  - Monoparesis [Recovered/Resolved]
  - Muscular weakness [Recovered/Resolved]
  - Supraventricular tachycardia [Recovered/Resolved]
  - Upper motor neurone lesion [Recovered/Resolved]
  - Thermohypoaesthesia [Recovered/Resolved]
  - Hypoaesthesia [Recovered/Resolved]
  - Sensory disturbance [Recovered/Resolved]
  - Arthralgia [Recovered/Resolved]
  - Groin pain [Recovered/Resolved]
  - Pain [Recovered/Resolved]
  - Burning sensation [Recovered/Resolved]
  - Phonophobia [Recovered/Resolved]
  - Cough [Not Recovered/Not Resolved]
  - Chest pain [Recovered/Resolved]
  - Back pain [Recovered/Resolved]
  - Feeling cold [Recovered/Resolved]
  - Mobility decreased [Recovered/Resolved]
  - Paraesthesia [Recovered/Resolved]

NARRATIVE: CASE EVENT DATE: 20221222
